FAERS Safety Report 4754215-3 (Version None)
Quarter: 2005Q3

REPORT INFORMATION
  Report Type: 
  Country: None (occurrence: None)
  Receive Date: 20050825
  Receipt Date: 20050825
  Transmission Date: 20060218
  Serious: Yes (Death, Hospitalization)
  Sender: FDA-Public Use
  Company Number: None

PATIENT
  Sex: Male
  Weight: 85 kg

DRUGS (2)
  1. CYTARABINE [Suspect]
     Indication: ACUTE MYELOID LEUKAEMIA
     Dosage: SEE IMAGE
     Dates: start: 20050801, end: 20050807
  2. G-CSF [Suspect]
     Dosage: SEE IMAGE
     Dates: start: 20050801, end: 20050820

REACTIONS (12)
  - BACTERIAL SEPSIS [None]
  - CEREBRAL HAEMORRHAGE [None]
  - EMBOLISM [None]
  - ERYTHEMA [None]
  - FEBRILE NEUTROPENIA [None]
  - FUNGAL SEPSIS [None]
  - LUNG NEOPLASM [None]
  - MENTAL STATUS CHANGES [None]
  - OEDEMA PERIPHERAL [None]
  - SKIN LESION [None]
  - SKIN NECROSIS [None]
  - THROMBOCYTOPENIA [None]
